FAERS Safety Report 12824584 (Version 1)
Quarter: 2016Q4

REPORT INFORMATION
  Report Type: Spontaneous
  Country: BR (occurrence: BR)
  Receive Date: 20161007
  Receipt Date: 20161007
  Transmission Date: 20170207
  Serious: Yes (Hospitalization, Other)
  Sender: FDA-Public Use
  Company Number: BR-PFIZER INC-2016464551

PATIENT
  Age: 66 Year
  Sex: Female
  Weight: 55 kg

DRUGS (6)
  1. LIPOSIC [Concomitant]
     Active Substance: CARBOMER
     Dosage: UNK
  2. AZOPT [Concomitant]
     Active Substance: BRINZOLAMIDE
     Indication: GLAUCOMA
     Dosage: UNK UNK, 2X/DAY
  3. PURAN [Concomitant]
     Active Substance: LEVOTHYROXINE SODIUM
     Indication: THYROID DISORDER
     Dosage: 50 MG (1 TABLET) PER DAY
  4. XALATAN [Suspect]
     Active Substance: LATANOPROST
     Indication: GLAUCOMA
     Dosage: ONE DROP IN EACH EYE, IN THE MORNING AND IN THE AFTERNOON
     Route: 047
     Dates: start: 2001
  5. AAS INFANTIL [Concomitant]
     Active Substance: ASPIRIN
     Indication: CONGENITAL CYSTIC KIDNEY DISEASE
     Dosage: 1 DF, 1XDAY AT LUNCH TIME
  6. SUSTRATE [Concomitant]
     Active Substance: PROPATYL NITRATE
     Indication: CARDIAC DISORDER
     Dosage: 3 TABLETS PER DAY

REACTIONS (3)
  - Coma [Recovered/Resolved]
  - Diabetes mellitus [Unknown]
  - Product use issue [Unknown]

NARRATIVE: CASE EVENT DATE: 2001
